FAERS Safety Report 5174431-9 (Version None)
Quarter: 2006Q4

REPORT INFORMATION
  Report Type: 
  Country: None (occurrence: None)
  Receive Date: 20061206
  Receipt Date: 20061124
  Transmission Date: 20070319
  Serious: Yes (Life-Threatening)
  Sender: FDA-Public Use
  Company Number: 2006-150992-NL

PATIENT

DRUGS (1)
  1. ROCURONIUM BROMIDE (BATCH #: 1760337) [Suspect]
     Indication: INDUCTION OF ANAESTHESIA

REACTIONS (2)
  - ANAPHYLACTIC REACTION [None]
  - CARDIAC ARREST [None]
